FAERS Safety Report 18814477 (Version 1)
Quarter: 2021Q1

REPORT INFORMATION
  Report Type: Spontaneous
  Country: US (occurrence: US)
  Receive Date: 20210129
  Receipt Date: 20210129
  Transmission Date: 20210419
  Serious: No
  Sender: FDA-Public Use
  Company Number: None

PATIENT
  Age: 56 Year
  Sex: Male
  Weight: 102.1 kg

DRUGS (8)
  1. CEFTRIAXONE 1GM IV X1 [Concomitant]
     Dates: start: 20200722, end: 20200722
  2. BENZONATATE 100MG PO TID [Concomitant]
     Dates: start: 20200723, end: 20200729
  3. REMDESIVIR. [Suspect]
     Active Substance: REMDESIVIR
     Indication: COVID-19
     Route: 042
     Dates: start: 20200723, end: 20200727
  4. DEXAMETHASONE 6MG PO DAILY [Concomitant]
     Active Substance: DEXAMETHASONE
     Dates: start: 20200722, end: 20200729
  5. LOVENOX 40MG SUBCUT DAILY [Concomitant]
     Dates: start: 20200723, end: 20200729
  6. COMBIVENT RESPIMAT QID [Concomitant]
     Dates: start: 20200723, end: 20200729
  7. ROBITUSSIN AC 10ML Q6H PRN [Concomitant]
     Dates: start: 20200723, end: 20200729
  8. AZITHROMYCIN 500MG IV X 1 [Concomitant]
     Dates: start: 20200722, end: 20200722

REACTIONS (1)
  - Rash [None]

NARRATIVE: CASE EVENT DATE: 20200723
